FAERS Safety Report 15426221 (Version 1)
Quarter: 2018Q3

REPORT INFORMATION
  Report Type: Spontaneous
  Country: RU (occurrence: RU)
  Receive Date: 20180925
  Receipt Date: 20180925
  Transmission Date: 20181010
  Serious: Yes (Other)
  Sender: FDA-Public Use
  Company Number: RU-ASTRAZENECA-2017SE17745

PATIENT
  Age: 54 Year
  Sex: Male
  Weight: 105 kg

DRUGS (9)
  1. CLOPIDOGREL [Concomitant]
     Active Substance: CLOPIDOGREL BISULFATE
  2. BRILINTA [Suspect]
     Active Substance: TICAGRELOR
     Indication: MYOCARDIAL INFARCTION
     Route: 048
     Dates: start: 201707
  3. CARSIL [Concomitant]
     Active Substance: DIETARY SUPPLEMENT\HERBALS\MILK THISTLE
  4. ROSULIP [Concomitant]
     Active Substance: ROSUVASTATIN CALCIUM
  5. THROMBO ASS [Concomitant]
     Active Substance: ASPIRIN
  6. BRILINTA [Suspect]
     Active Substance: TICAGRELOR
     Indication: MYOCARDIAL INFARCTION
     Route: 048
     Dates: start: 201607, end: 201707
  7. BIPROL [Concomitant]
     Active Substance: BISOPROLOL FUMARATE
  8. VEROSPIRON [Concomitant]
     Active Substance: SPIRONOLACTONE
  9. BETAHISTINE [Concomitant]
     Active Substance: BETAHISTINE

REACTIONS (2)
  - Cardiac aneurysm [Not Recovered/Not Resolved]
  - Dyspnoea exertional [Not Recovered/Not Resolved]

NARRATIVE: CASE EVENT DATE: 201807
